FAERS Safety Report 5133790-3 (Version None)
Quarter: 2006Q4

REPORT INFORMATION
  Report Type: 
  Country: None (occurrence: None)
  Receive Date: 20061018
  Receipt Date: 20061009
  Transmission Date: 20070319
  Serious: Yes (Death)
  Sender: FDA-Public Use
  Company Number: 2006SP004032

PATIENT
  Age: 54 Year
  Sex: Male

DRUGS (2)
  1. PEG-INTRON [Suspect]
     Indication: DRUG USE FOR UNKNOWN INDICATION
     Dates: start: 20060101
  2. REBETOL [Suspect]
     Indication: DRUG USE FOR UNKNOWN INDICATION
     Dosage: PO
     Route: 048
     Dates: start: 20060101

REACTIONS (1)
  - DEATH [None]
